FAERS Safety Report 24397437 (Version 4)
Quarter: 2025Q1

REPORT INFORMATION
  Report Type: Report from Study
  Country: US (occurrence: US)
  Receive Date: 20241004
  Receipt Date: 20250310
  Transmission Date: 20250408
  Serious: No
  Sender: SUNOVION
  Company Number: US-SUMITOMO PHARMA SWITZERLAND GMBH-2024SPA003215

PATIENT

DRUGS (8)
  1. ORGOVYX [Suspect]
     Active Substance: RELUGOLIX
     Indication: Prostate cancer
     Dosage: 360 MG, SINGLE
     Route: 048
     Dates: start: 20240819, end: 20240819
  2. ORGOVYX [Suspect]
     Active Substance: RELUGOLIX
     Dosage: 120 MG, QD
     Route: 048
     Dates: start: 20240820
  3. CLARITIN [Concomitant]
     Active Substance: LORATADINE
     Route: 048
  4. Daily multiple vitamins with iron [Concomitant]
     Route: 048
  5. NYSTATIN [Concomitant]
     Active Substance: NYSTATIN
     Route: 065
  6. ECZEMA RELIEF [Concomitant]
     Active Substance: ALLANTOIN\OATMEAL
     Route: 065
  7. TADALAFIL [Concomitant]
     Active Substance: TADALAFIL
     Route: 048
  8. HERBALS\WITHANIA SOMNIFERA ROOT [Concomitant]
     Active Substance: HERBALS\WITHANIA SOMNIFERA ROOT
     Route: 048

REACTIONS (5)
  - Bladder disorder [Recovered/Resolved]
  - Pollakiuria [Recovered/Resolved]
  - Blood glucose increased [Unknown]
  - Hot flush [Recovering/Resolving]
  - Product dose omission issue [Unknown]
